FAERS Safety Report 9116194 (Version 4)
Quarter: 2013Q4

REPORT INFORMATION
  Report Type: Spontaneous
  Country: DE (occurrence: CA)
  Receive Date: 20130225
  Receipt Date: 20131231
  Transmission Date: 20140711
  Serious: Yes (Hospitalization, Other)
  Sender: FDA-Public Use
  Company Number: CA-FRI-1000042884

PATIENT
  Age: 68 Year
  Sex: Female

DRUGS (2)
  1. ROFLUMILAST [Suspect]
     Indication: CHRONIC OBSTRUCTIVE PULMONARY DISEASE
     Dosage: 500 MCG
     Route: 048
     Dates: start: 20121017
  2. ROFLUMILAST [Suspect]
     Dosage: 500 MCG
     Route: 048
     Dates: start: 20130213

REACTIONS (9)
  - Fall [Unknown]
  - Fracture [Unknown]
  - Back pain [Unknown]
  - Malaise [Unknown]
  - Weight decreased [Unknown]
  - Compression fracture [Unknown]
  - Pneumonia [Unknown]
  - Thrombosis [Unknown]
  - Dyspnoea [Unknown]
